FAERS Safety Report 18815300 (Version 1)
Quarter: 2021Q1

REPORT INFORMATION
  Report Type: Spontaneous
  Country: US (occurrence: US)
  Receive Date: 20210130
  Receipt Date: 20210130
  Transmission Date: 20210419
  Serious: Yes (Disabling, Other)
  Sender: FDA-Public Use
  Company Number: None

PATIENT
  Age: 55 Year
  Sex: Male
  Weight: 95.4 kg

DRUGS (9)
  1. CLOPIDOGREL [Suspect]
     Active Substance: CLOPIDOGREL BISULFATE
     Indication: CORONARY ARTERY THROMBOSIS
     Dosage: ?          QUANTITY:90 TABLET(S);?
     Route: 048
  2. PLAVIX [Concomitant]
     Active Substance: CLOPIDOGREL BISULFATE
  3. DIGESTIVE ENZYMES [Concomitant]
     Active Substance: UNSPECIFIED INGREDIENT
  4. PRILOSEC [Concomitant]
     Active Substance: OMEPRAZOLE MAGNESIUM
  5. DOXEPIN [Concomitant]
     Active Substance: DOXEPIN
  6. PROZAC [Concomitant]
     Active Substance: FLUOXETINE HYDROCHLORIDE
  7. MODAFINIL. [Concomitant]
     Active Substance: MODAFINIL
  8. TAGAMET [Concomitant]
     Active Substance: CIMETIDINE
  9. ASPIRIN. [Concomitant]
     Active Substance: ASPIRIN

REACTIONS (14)
  - Oedema peripheral [None]
  - Contusion [None]
  - Stomatitis [None]
  - Product prescribing issue [None]
  - Dyspnoea [None]
  - Hypercholesterolaemia [None]
  - Confusional state [None]
  - Haemoptysis [None]
  - Haematoma [None]
  - Haemorrhage subcutaneous [None]
  - Depression [None]
  - Blood urine present [None]
  - Peripheral ischaemia [None]
  - Muscle spasms [None]

NARRATIVE: CASE EVENT DATE: 20210101
